FAERS Safety Report 25673932 (Version 1)
Quarter: 2025Q3

REPORT INFORMATION
  Report Type: Report from Study
  Country: US (occurrence: US)
  Receive Date: 20250813
  Receipt Date: 20250813
  Transmission Date: 20251021
  Serious: Yes (Other)
  Sender: AUROBINDO
  Company Number: US-AUROBINDO-AUR-APL-2025-040654

PATIENT
  Age: 68 Year
  Sex: Female

DRUGS (5)
  1. CARBOPLATIN [Suspect]
     Active Substance: CARBOPLATIN
     Indication: Triple negative breast cancer
     Route: 065
  2. CYCLOPHOSPHAMIDE [Suspect]
     Active Substance: CYCLOPHOSPHAMIDE
     Indication: Triple negative breast cancer
     Route: 065
  3. TAXOL [Suspect]
     Active Substance: PACLITAXEL
     Indication: Triple negative breast cancer
     Route: 065
  4. ADRIAMYCIN [Suspect]
     Active Substance: DOXORUBICIN HYDROCHLORIDE
     Indication: Triple negative breast cancer
     Route: 065
  5. PEMBROLIZUMAB [Suspect]
     Active Substance: PEMBROLIZUMAB
     Indication: Triple negative breast cancer
     Route: 065

REACTIONS (4)
  - Electrocardiogram QT prolonged [Unknown]
  - Angina pectoris [Unknown]
  - Cardiotoxicity [Unknown]
  - Ventricular extrasystoles [Recovered/Resolved]
